FAERS Safety Report 19433613 (Version 1)
Quarter: 2021Q2

REPORT INFORMATION
  Report Type: Other
  Country: US (occurrence: US)
  Receive Date: 20210617
  Receipt Date: 20210617
  Transmission Date: 20210717
  Serious: No
  Sender: FDA-Public Use
  Company Number: US-ROCHE-2806139

PATIENT
  Age: 46 Year
  Sex: Male

DRUGS (9)
  1. NOREPINEPHRINE. [Concomitant]
     Active Substance: NOREPINEPHRINE
  2. HEPARIN [Concomitant]
     Active Substance: HEPARIN SODIUM
     Dosage: 12 UNIT/KG/HR
  3. VANCOMYCIN [Concomitant]
     Active Substance: VANCOMYCIN
  4. AZITHROMYCIN ANHYDROUS. [Concomitant]
     Active Substance: AZITHROMYCIN ANHYDROUS
     Indication: COVID-19
     Route: 048
  5. HYDROCORTISONE. [Concomitant]
     Active Substance: HYDROCORTISONE
  6. TOCILIZUMAB. [Suspect]
     Active Substance: TOCILIZUMAB
     Indication: COVID-19
     Route: 065
  7. CEFEPIME [Concomitant]
     Active Substance: CEFEPIME HYDROCHLORIDE
  8. CEFTRIAXONE. [Suspect]
     Active Substance: CEFTRIAXONE
     Indication: COVID-19
     Route: 042
  9. DEXAMETHASONE. [Concomitant]
     Active Substance: DEXAMETHASONE
     Indication: COVID-19

REACTIONS (2)
  - Off label use [Unknown]
  - No adverse event [Unknown]
